FAERS Safety Report 19271208 (Version 1)
Quarter: 2021Q2

REPORT INFORMATION
  Report Type: Report from Study
  Country: DE (occurrence: DE)
  Receive Date: 20210518
  Receipt Date: 20210518
  Transmission Date: 20210717
  Serious: Yes (Hospitalization)
  Sender: FDA-Public Use
  Company Number: DE-SA-2021SA164034

PATIENT
  Age: 33 Year
  Sex: Male

DRUGS (8)
  1. AFLIBERCEPT [Suspect]
     Active Substance: AFLIBERCEPT
     Dosage: 380 MG, QCY
     Route: 042
     Dates: start: 20210302, end: 20210302
  2. OXALIPLATIN. [Suspect]
     Active Substance: OXALIPLATIN
     Dosage: 135 MG, QCY
     Route: 042
     Dates: start: 20210302, end: 20210302
  3. AFLIBERCEPT [Suspect]
     Active Substance: AFLIBERCEPT
     Indication: COLORECTAL CANCER METASTATIC
     Dosage: 380 MG, QCY
     Route: 042
     Dates: start: 20201215, end: 20201215
  4. CALCIUM FOLINATE [Suspect]
     Active Substance: LEUCOVORIN CALCIUM
     Indication: COLORECTAL CANCER METASTATIC
     Dosage: 740 MG, QCY
     Route: 042
     Dates: start: 20201215, end: 20201215
  5. CALCIUM FOLINATE [Suspect]
     Active Substance: LEUCOVORIN CALCIUM
     Dosage: 740 MG, QCY
     Route: 042
     Dates: start: 20210302, end: 20210302
  6. OXALIPLATIN. [Suspect]
     Active Substance: OXALIPLATIN
     Indication: COLORECTAL CANCER METASTATIC
     Dosage: 135 MG, QCY
     Route: 042
     Dates: start: 20201215, end: 20201215
  7. 5?FU [Suspect]
     Active Substance: FLUOROURACIL
     Indication: COLORECTAL CANCER METASTATIC
     Dosage: 5950 MG, QCY
     Route: 042
     Dates: start: 20201215, end: 20201215
  8. 5?FU [Suspect]
     Active Substance: FLUOROURACIL
     Dosage: 5950 MG, QCY
     Route: 042
     Dates: start: 20210302, end: 20210302

REACTIONS (1)
  - Gastrointestinal anastomotic leak [Recovered/Resolved]

NARRATIVE: CASE EVENT DATE: 20210422
